FAERS Safety Report 19157233 (Version 1)
Quarter: 2021Q2

REPORT INFORMATION
  Report Type: Spontaneous
  Country: CA (occurrence: CA)
  Receive Date: 20210420
  Receipt Date: 20210420
  Transmission Date: 20210717
  Serious: Yes (Other)
  Sender: FDA-Public Use
  Company Number: NVSC2021CA083924

PATIENT
  Age: 49 Year
  Sex: Male

DRUGS (4)
  1. LUTATHERA [Suspect]
     Active Substance: LUTETIUM OXODOTREOTIDE LU-177
     Indication: NEUROENDOCRINE TUMOUR
     Dosage: UNK
     Route: 065
  2. SANDOSTATIN LAR DEPOT [Suspect]
     Active Substance: OCTREOTIDE ACETATE
  3. SANDOSTATIN LAR DEPOT [Suspect]
     Active Substance: OCTREOTIDE ACETATE
     Indication: NEUROENDOCRINE CARCINOMA METASTATIC
     Dosage: 30 MG, Q4W (1 EVERY 4 WEEKS)
     Route: 030
  4. SANDOSTATIN LAR DEPOT [Suspect]
     Active Substance: OCTREOTIDE ACETATE
     Dosage: UNK
     Route: 065

REACTIONS (17)
  - Heart valve incompetence [Unknown]
  - Heart rate decreased [Unknown]
  - Injection site reaction [Unknown]
  - Haemorrhage [Unknown]
  - Anxiety [Unknown]
  - Malaise [Unknown]
  - Neuroendocrine tumour [Unknown]
  - Injection site haemorrhage [Unknown]
  - Blood pressure increased [Unknown]
  - Herpes zoster [Unknown]
  - Diarrhoea [Unknown]
  - Fatigue [Unknown]
  - Osteoarthritis [Unknown]
  - Body temperature decreased [Unknown]
  - Constipation [Unknown]
  - Neoplasm progression [Unknown]
  - Injection site erythema [Unknown]
